FAERS Safety Report 18254292 (Version 1)
Quarter: 2020Q3

REPORT INFORMATION
  Report Type: Spontaneous
  Country: US (occurrence: US)
  Receive Date: 20200910
  Receipt Date: 20200910
  Transmission Date: 20201103
  Serious: No
  Sender: FDA-Public Use
  Company Number: US-TEVA-2020-US-1826236

PATIENT
  Age: 61 Year
  Sex: Female

DRUGS (1)
  1. CARBIDOPA AND LEVODOPA [Suspect]
     Active Substance: CARBIDOPA\LEVODOPA
     Dosage: CARBIDOPA AND LEVODOPA TABLET 25 MG/100 MG
     Route: 065

REACTIONS (7)
  - Blood pressure decreased [Unknown]
  - Headache [Unknown]
  - Gait inability [Unknown]
  - Dysstasia [Unknown]
  - Body temperature increased [Unknown]
  - Nausea [Unknown]
  - Dizziness [Unknown]
